FAERS Safety Report 5287989-6 (Version None)
Quarter: 2007Q2

REPORT INFORMATION
  Report Type: 
  Country: None (occurrence: None)
  Receive Date: 20070405
  Receipt Date: 20070329
  Transmission Date: 20071010
  Serious: Yes (Hospitalization)
  Sender: FDA-Public Use
  Company Number: TW-JNJFOC-20070307039

PATIENT
  Sex: Female

DRUGS (3)
  1. NIZORAL [Suspect]
     Indication: ANTIFUNGAL PROPHYLAXIS
     Route: 065
  2. DEXAMETHASONE [Concomitant]
     Route: 065
  3. CIMETIDINE HCL [Concomitant]
     Route: 065

REACTIONS (2)
  - ANOREXIA [None]
  - JAUNDICE [None]
